FAERS Safety Report 16977245 (Version 1)
Quarter: 2019Q4

REPORT INFORMATION
  Report Type: Spontaneous
  Country: US (occurrence: US)
  Receive Date: 20191031
  Receipt Date: 20191031
  Transmission Date: 20200122
  Serious: Yes (Other)
  Sender: FDA-Public Use
  Company Number: US-ABBVIE-19K-163-2977131-00

PATIENT
  Age: 72 Year
  Sex: Female
  Weight: 41.77 kg

DRUGS (1)
  1. SYNTHROID [Suspect]
     Active Substance: LEVOTHYROXINE SODIUM
     Indication: HYPOTHYROIDISM
     Route: 048

REACTIONS (3)
  - Thyroidectomy [Unknown]
  - Fatigue [Unknown]
  - Weight gain poor [Unknown]

NARRATIVE: CASE EVENT DATE: 2006
